FAERS Safety Report 12814139 (Version 1)
Quarter: 2016Q4

REPORT INFORMATION
  Report Type: Report from Study
  Country: US (occurrence: US)
  Receive Date: 20161006
  Receipt Date: 20161006
  Transmission Date: 20170207
  Serious: No
  Sender: FDA-Public Use
  Company Number: US-AMGEN-USASL2016081482

PATIENT
  Age: 61 Year
  Sex: Female

DRUGS (1)
  1. PROLIA [Suspect]
     Active Substance: DENOSUMAB
     Indication: PRODUCT USED FOR UNKNOWN INDICATION
     Dosage: UNK
     Route: 065

REACTIONS (6)
  - Myalgia [Unknown]
  - Tendon disorder [Unknown]
  - Throat tightness [Unknown]
  - Muscle spasms [Unknown]
  - Back pain [Not Recovered/Not Resolved]
  - Intervertebral disc degeneration [Unknown]

NARRATIVE: CASE EVENT DATE: 201602
